FAERS Safety Report 7388003-9 (Version None)
Quarter: 2011Q1

REPORT INFORMATION
  Report Type: 
  Country: None (occurrence: None)
  Receive Date: 20110322
  Receipt Date: 20110309
  Transmission Date: 20110831
  Serious: No
  Sender: FDA-Public Use
  Company Number: B0704739A

PATIENT
  Age: 37 Year
  Sex: Female

DRUGS (7)
  1. LAMOTRIGINE [Suspect]
     Indication: EPILEPSY
     Dosage: 500 MG / PER DAY
  2. RUFINAMDIE [Concomitant]
  3. LAMOTRIGINE [Suspect]
     Indication: EPILEPSY
     Dosage: 450 MG / PER DAY
  4. PHENYTOIN (FORMULATION UNKNOWN) (GENERIC) (PHENYTOIN) [Suspect]
     Indication: EPILEPSY
     Dosage: 375 MG / PER DAY
  5. CLONAZEPAM [Concomitant]
  6. PHENYTOIN (FORMULATION UNKNOWN) (GENERIC) (PHENYTOIN) [Suspect]
     Indication: EPILEPSY
     Dosage: 325 MG / PER DAY
  7. LACOSAMIDE (FORMULATION UNKNOWN) (GENERIIC) (LACOSAMIDE) [Suspect]
     Indication: EPILEPSY
     Dosage: 200 MG / PER DAY

REACTIONS (5)
  - BALANCE DISORDER [None]
  - DRUG INTERACTION [None]
  - DIPLOPIA [None]
  - NEUROTOXICITY [None]
  - DIZZINESS [None]
